FAERS Safety Report 7383650-2 (Version None)
Quarter: 2011Q1

REPORT INFORMATION
  Report Type: 
  Country: None (occurrence: None)
  Receive Date: 20110330
  Receipt Date: 20101001
  Transmission Date: 20110831
  Serious: Yes (Hospitalization, Other)
  Sender: FDA-Public Use
  Company Number: US-BAYER-201031255NA

PATIENT
  Sex: Female
  Weight: 64.853 kg

DRUGS (13)
  1. YAZ [Suspect]
     Indication: CONTRACEPTION
     Dosage: UNK UNK, UNK
     Route: 048
     Dates: start: 20030801, end: 20080801
  2. SINGULAIR [Concomitant]
     Dosage: UNK
     Dates: start: 20040101
  3. COLACE [Concomitant]
  4. ALLEGRA [Concomitant]
     Dosage: UNK
     Dates: start: 20040101
  5. PREDNISONE [Concomitant]
  6. VALIUM [Concomitant]
  7. YASMIN [Suspect]
     Indication: CONTRACEPTION
     Dosage: UNK UNK, UNK
     Route: 048
     Dates: start: 20030801, end: 20080801
  8. CYCLOBENZAPRINE [Concomitant]
  9. PROPOXYPHENE HYDROCHLORIDE W/PARACETAMOL [Concomitant]
  10. CHOLESTYRAMINE [Concomitant]
     Indication: DYSPEPSIA
     Dosage: UNK
     Dates: start: 20000101
  11. NORCO [Concomitant]
  12. AMBIEN [Concomitant]
  13. OXYCONTIN [Concomitant]

REACTIONS (3)
  - OEDEMA PERIPHERAL [None]
  - DEEP VEIN THROMBOSIS [None]
  - SKIN DISCOLOURATION [None]
